FAERS Safety Report 8920019 (Version 1)
Quarter: 2012Q4

REPORT INFORMATION
  Report Type: 
  Country: US (occurrence: US)
  Receive Date: 20121121
  Receipt Date: 20121121
  Transmission Date: 20130627
  Serious: No
  Sender: FDA-Public Use
  Company Number: US-BRISTOL-MYERS SQUIBB COMPANY-16143992

PATIENT
  Age: 53 Year
  Sex: Female

DRUGS (1)
  1. AVALIDE [Suspect]
     Dosage: 1DF:300/12.5mg

REACTIONS (3)
  - Swelling [Unknown]
  - Headache [Unknown]
  - Hypertension [Unknown]
